FAERS Safety Report 6822531-7 (Version None)
Quarter: 2010Q3

REPORT INFORMATION
  Report Type: 
  Country: None (occurrence: None)
  Receive Date: 20100708
  Receipt Date: 20100607
  Transmission Date: 20110219
  Serious: No
  Sender: FDA-Public Use
  Company Number: US-BAYER-201025911NA

PATIENT
  Age: 41 Year
  Sex: Male
  Weight: 91 kg

DRUGS (2)
  1. ULTRAVIST (PHARMACY BULK) [Suspect]
     Indication: COMPUTERISED TOMOGRAM THORAX
     Dosage: POWER INJECTOR 2.2 ML/SEC ON LEFT ANTECUBITAL. 37.5 C WARMER WAS USED.
     Route: 042
  2. ALBUTEROL [Concomitant]
     Route: 055

REACTIONS (2)
  - PRURITUS [None]
  - URTICARIA [None]
